FAERS Safety Report 19801284 (Version 1)
Quarter: 2021Q3

REPORT INFORMATION
  Report Type: Other
  Country: US (occurrence: US)
  Receive Date: 20210908
  Receipt Date: 20210908
  Transmission Date: 20211014
  Serious: Yes (Other)
  Sender: FDA-Public Use
  Company Number: US-ROCHE-2903047

PATIENT
  Sex: Female

DRUGS (2)
  1. XELODA [Suspect]
     Active Substance: CAPECITABINE
     Indication: BREAST CANCER FEMALE
     Route: 048
  2. TUCATINIB [Concomitant]
     Active Substance: TUCATINIB

REACTIONS (3)
  - Blood electrolytes decreased [Unknown]
  - Seizure [Unknown]
  - Blood potassium decreased [Unknown]
